FAERS Safety Report 19109169 (Version 1)
Quarter: 2021Q2

REPORT INFORMATION
  Report Type: Spontaneous
  Country: US (occurrence: US)
  Receive Date: 20210409
  Receipt Date: 20210409
  Transmission Date: 20210717
  Serious: Yes (Hospitalization, Other)
  Sender: FDA-Public Use
  Company Number: US-ROCHE-2788434

PATIENT
  Age: 45 Year
  Sex: Female

DRUGS (1)
  1. OCREVUS [Suspect]
     Active Substance: OCRELIZUMAB
     Indication: MULTIPLE SCLEROSIS
     Dosage: SUBSEQUENT DOSES: FEB/2020 AND AUG/2020
     Route: 065
     Dates: start: 201807

REACTIONS (7)
  - Muscular weakness [Unknown]
  - Gait disturbance [Unknown]
  - Dysarthria [Unknown]
  - Dizziness [Unknown]
  - Feeling abnormal [Unknown]
  - Multiple sclerosis relapse [Unknown]
  - Hemiplegia [Unknown]

NARRATIVE: CASE EVENT DATE: 202002
